FAERS Safety Report 5087026-2 (Version None)
Quarter: 2006Q3

REPORT INFORMATION
  Report Type: 
  Country: None (occurrence: None)
  Receive Date: 20060821
  Receipt Date: 20060809
  Transmission Date: 20061208
  Serious: Yes (Death, Life-Threatening, Other)
  Sender: FDA-Public Use
  Company Number: US018083

PATIENT
  Age: 63 Year
  Sex: Male

DRUGS (8)
  1. TRISENOX [Suspect]
     Indication: ACUTE PROMYELOCYTIC LEUKAEMIA
     Dosage: 8.025 MG QD INTRAVENOUS DRIP
     Route: 041
     Dates: start: 20051208, end: 20051211
  2. TRISENOX [Suspect]
     Indication: ACUTE PROMYELOCYTIC LEUKAEMIA
     Dosage: 8.025 MG BI-WEEKLY Q72HR INTRAVENOUS DRIP
     Route: 041
     Dates: start: 20051212, end: 20051219
  3. DALTEPARIN SODIM [Concomitant]
  4. FAMOTIDINE [Concomitant]
  5. BROTIZOLAM [Concomitant]
  6. CARBAZOCHROME SODIUM SULFONATE [Concomitant]
  7. TRANEXAMIC ACID [Concomitant]
  8. SODIUM BICARBONATE [Concomitant]

REACTIONS (6)
  - BLOOD LACTATE DEHYDROGENASE INCREASED [None]
  - DISEASE PROGRESSION [None]
  - DISSEMINATED INTRAVASCULAR COAGULATION [None]
  - FIBRIN DEGRADATION PRODUCTS INCREASED [None]
  - LEUKOCYTOSIS [None]
  - PUTAMEN HAEMORRHAGE [None]
